FAERS Safety Report 8338495-3 (Version None)
Quarter: 2012Q2

REPORT INFORMATION
  Report Type: 
  Country: None (occurrence: None)
  Receive Date: 20120504
  Receipt Date: 20120427
  Transmission Date: 20120825
  Serious: Yes (Hospitalization)
  Sender: FDA-Public Use
  Company Number: JP-TEVA-336269USA

PATIENT
  Age: 71 Year
  Sex: Male

DRUGS (6)
  1. TREANDA [Suspect]
     Indication: B-CELL LYMPHOMA
     Route: 042
     Dates: start: 20120416
  2. RITUXIMAB [Concomitant]
  3. VALACICLOVIR [Concomitant]
  4. ALLOPURINOL [Concomitant]
  5. PIOGLITAZONE [Concomitant]
  6. MAGNESIUM OXIDE [Concomitant]

REACTIONS (1)
  - LIVER DISORDER [None]
